FAERS Safety Report 8319095 (Version 2)
Quarter: 2012Q4

REPORT INFORMATION
  Report Type: 
  Country: US (occurrence: US)
  Receive Date: 20120103
  Receipt Date: 20121128
  Transmission Date: 20130627
  Serious: Yes (Death, Congenital Anomaly, Other)
  Sender: FDA-Public Use
  Company Number: US-ELI_LILLY_AND_COMPANY-US201112006071

PATIENT

DRUGS (1)
  1. PROZAC [Suspect]
     Dosage: UNK, unknown
     Route: 064

REACTIONS (5)
  - Cardiac failure [Fatal]
  - Cardiomegaly [Unknown]
  - Convulsion [Unknown]
  - Brain injury [Unknown]
  - Foetal exposure during pregnancy [Unknown]
